FAERS Safety Report 19103420 (Version 8)
Quarter: 2022Q4

REPORT INFORMATION
  Report Type: Report from Study
  Country: NL (occurrence: None)
  Receive Date: 20210407
  Receipt Date: 20221013
  Transmission Date: 20230113
  Serious: Yes (Hospitalization)
  Sender: FDA-Public Use
  Company Number: NL-ROCHE-2802637

PATIENT
  Age: 64 Year
  Sex: Male
  Weight: 69.9 kg

DRUGS (30)
  1. PLACEBO [Suspect]
     Active Substance: UNSPECIFIED INGREDIENT
     Indication: Lung adenocarcinoma
     Dosage: ON 07/JAN/2021, HE RECEIVED MOST RECENT DOSE OF STUDY DRUG PRIOR TO AE.?ON 18/MAR/2021, HE RECEIVED
     Route: 042
     Dates: start: 20200925
  2. ATEZOLIZUMAB [Suspect]
     Active Substance: ATEZOLIZUMAB
     Indication: Lung adenocarcinoma
     Dosage: ON 07/JAN/2021, HE RECEIVED MOST RECENT DOSE 1200 MG PRIOR TO AE.?ON 18/MAR/2021, HE RECEIVED MOST R
     Route: 041
     Dates: start: 20200925
  3. ACENOCOUMAROL [Concomitant]
     Active Substance: ACENOCOUMAROL
     Dates: start: 201010, end: 20210331
  4. ACENOCOUMAROL [Concomitant]
     Active Substance: ACENOCOUMAROL
     Route: 047
     Dates: start: 20210409
  5. CYANOCOBALAMIN [Concomitant]
     Active Substance: CYANOCOBALAMIN
     Dates: start: 2015
  6. LOPERAMIDE [Concomitant]
     Active Substance: LOPERAMIDE
     Indication: Diarrhoea
     Dates: start: 2011
  7. OMEPRAZOLE [Concomitant]
     Active Substance: OMEPRAZOLE
     Dates: start: 2010
  8. OXYCODONE [Concomitant]
     Active Substance: OXYCODONE
     Indication: Pain
     Dates: start: 20200916
  9. OXYCODONE [Concomitant]
     Active Substance: OXYCODONE
     Indication: Arthralgia
     Dates: start: 202003
  10. OXYCODONE [Concomitant]
     Active Substance: OXYCODONE
     Route: 048
     Dates: start: 20210202, end: 20210310
  11. OXYCODONE [Concomitant]
     Active Substance: OXYCODONE
     Route: 048
     Dates: start: 20210311
  12. ACETAMINOPHEN [Concomitant]
     Active Substance: ACETAMINOPHEN
     Indication: Pain
     Dates: start: 202003
  13. ACETAMINOPHEN [Concomitant]
     Active Substance: ACETAMINOPHEN
     Indication: Chills
     Route: 048
     Dates: start: 20210310, end: 20210311
  14. PREGABALIN [Concomitant]
     Active Substance: PREGABALIN
     Indication: Pain
     Dates: start: 20200916
  15. ZOMETA [Concomitant]
     Active Substance: ZOLEDRONIC ACID
     Dates: start: 20200907
  16. DESOXIMETASONE [Concomitant]
     Active Substance: DESOXIMETASONE
     Indication: Haemorrhoids
     Route: 061
     Dates: start: 20201215
  17. PHYTONADIONE [Concomitant]
     Active Substance: PHYTONADIONE
     Indication: International normalised ratio increased
     Route: 048
     Dates: start: 20210401, end: 20210401
  18. NADROPARIN [Concomitant]
     Active Substance: NADROPARIN
     Dosage: 7600 U
     Route: 058
     Dates: start: 20210401, end: 20210401
  19. NADROPARIN [Concomitant]
     Active Substance: NADROPARIN
     Route: 058
     Dates: start: 20210406, end: 20210408
  20. CEFAZOLIN SODIUM [Concomitant]
     Active Substance: CEFAZOLIN SODIUM
     Route: 042
     Dates: start: 20210406, end: 20210406
  21. MIDAZOLAM [Concomitant]
     Active Substance: MIDAZOLAM
     Route: 042
     Dates: start: 20210406, end: 20210406
  22. VITAMIN K [Concomitant]
     Active Substance: PHYTONADIONE
     Indication: International normalised ratio increased
     Route: 048
     Dates: start: 20210614, end: 20210614
  23. AUGMENTIN [Concomitant]
     Active Substance: AMOXICILLIN\CLAVULANATE POTASSIUM
     Indication: Malaise
     Dates: start: 20210611, end: 20210614
  24. AUGMENTIN [Concomitant]
     Active Substance: AMOXICILLIN\CLAVULANATE POTASSIUM
     Indication: Urinary tract infection
  25. COVID-19 VACCINE [Concomitant]
     Dosage: ASTRA ZENECA
     Dates: start: 20210528, end: 20210528
  26. CIPROFLOXACIN [Concomitant]
     Active Substance: CIPROFLOXACIN
     Indication: Urinary tract infection
     Dates: start: 20210702, end: 20210715
  27. CIPROFLOXACIN [Concomitant]
     Active Substance: CIPROFLOXACIN
     Dates: start: 20210804, end: 20210818
  28. NORTRIPTYLINE [Concomitant]
     Active Substance: NORTRIPTYLINE
     Indication: Arthralgia
     Dates: start: 20210809
  29. CARBOPLATIN [Concomitant]
     Active Substance: CARBOPLATIN
     Dates: start: 20211021, end: 20220106
  30. PEMETREXED [Concomitant]
     Active Substance: PEMETREXED
     Dates: start: 20211021, end: 20220106

REACTIONS (1)
  - Nephropathy toxic [Not Recovered/Not Resolved]

NARRATIVE: CASE EVENT DATE: 20210125
